FAERS Safety Report 4665231-4 (Version None)
Quarter: 2005Q2

REPORT INFORMATION
  Report Type: 
  Country: None (occurrence: None)
  Receive Date: 20050518
  Receipt Date: 20050214
  Transmission Date: 20051028
  Serious: Yes (Hospitalization, Other)
  Sender: FDA-Public Use
  Company Number: US-MERCK-0502USA02024

PATIENT
  Age: 53 Year
  Sex: Female
  Weight: 129 kg

DRUGS (2)
  1. VIOXX [Suspect]
     Indication: OSTEOARTHRITIS
     Route: 048
     Dates: start: 20010301, end: 20040701
  2. [THERAPY UNSPECIFIED] [Concomitant]
     Route: 065

REACTIONS (12)
  - BLOOD GLUCOSE INCREASED [None]
  - BLOOD PRESSURE INCREASED [None]
  - CEREBROVASCULAR ACCIDENT [None]
  - CHEST PAIN [None]
  - DIABETIC RETINOPATHY [None]
  - DYSPNOEA [None]
  - MACULAR OEDEMA [None]
  - OEDEMA PERIPHERAL [None]
  - POST-TRAUMATIC STRESS DISORDER [None]
  - RENAL FAILURE [None]
  - TRICUSPID VALVE INCOMPETENCE [None]
  - VITREOUS HAEMORRHAGE [None]
